FAERS Safety Report 17839689 (Version 4)
Quarter: 2020Q2

REPORT INFORMATION
  Report Type: Spontaneous
  Country: GB (occurrence: GB)
  Receive Date: 20200529
  Receipt Date: 20200630
  Transmission Date: 20200714
  Serious: Yes (Hospitalization, Other)
  Sender: FDA-Public Use
  Company Number: GB-MYLANLABS-2020M1050808

PATIENT
  Age: 77 Year
  Sex: Male

DRUGS (1)
  1. CLOZARIL [Suspect]
     Active Substance: CLOZAPINE
     Indication: SCHIZOPHRENIA
     Dosage: 6.25 MILLIGRAM, PM
     Route: 048
     Dates: start: 20200221

REACTIONS (7)
  - Thrombocytopenia [Unknown]
  - Pneumonia [Unknown]
  - Acute kidney injury [Unknown]
  - Coronavirus infection [Unknown]
  - Dehydration [Unknown]
  - Respiratory symptom [Unknown]
  - Anaemia [Not Recovered/Not Resolved]

NARRATIVE: CASE EVENT DATE: 2020
